FAERS Safety Report 6067873-0 (Version None)
Quarter: 2009Q1

REPORT INFORMATION
  Report Type: 
  Country: None (occurrence: None)
  Receive Date: 20090203
  Receipt Date: 20090127
  Transmission Date: 20090719
  Serious: Yes (Death)
  Sender: FDA-Public Use
  Company Number: 2009-190298-NL

PATIENT
  Age: 31 Year
  Sex: Female

DRUGS (4)
  1. MIRTAZAPINE [Suspect]
     Dosage: PARENTERAL
     Route: 051
  2. LIDOCAINE [Suspect]
     Dosage: PARENTERAL
     Route: 051
  3. METHAMPHETAMINE HYDROCHLORIDE [Suspect]
     Dosage: PARENTERAL
     Route: 051
  4. AMPHETAMINE SULFATE [Suspect]
     Dosage: PARENTERAL
     Route: 051

REACTIONS (3)
  - CARDIAC ARREST [None]
  - DRUG ABUSE [None]
  - RESPIRATORY ARREST [None]
